FAERS Safety Report 18296485 (Version 2)
Quarter: 2020Q3

REPORT INFORMATION
  Report Type: Spontaneous
  Country: US (occurrence: US)
  Receive Date: 20200922
  Receipt Date: 20200923
  Transmission Date: 20201103
  Serious: Yes (Death, Other)
  Sender: FDA-Public Use
  Company Number: US-PFIZER INC-2020365245

PATIENT
  Age: 78 Year
  Sex: Female

DRUGS (14)
  1. PANTOPRAZOLE [Suspect]
     Active Substance: PANTOPRAZOLE
     Indication: GASTROOESOPHAGEAL REFLUX DISEASE
     Dosage: 40 MG
     Dates: start: 201106, end: 2013
  2. METOPROLOL. [Concomitant]
     Active Substance: METOPROLOL
     Indication: CARDIAC DISORDER
  3. PEPCID AC [Concomitant]
     Active Substance: FAMOTIDINE
     Dosage: UNK
  4. METOPROLOL. [Concomitant]
     Active Substance: METOPROLOL
     Indication: BLOOD PRESSURE ABNORMAL
     Dosage: UNK
     Dates: start: 201103, end: 201508
  5. NEXIUM [Suspect]
     Active Substance: ESOMEPRAZOLE MAGNESIUM
     Indication: GASTROOESOPHAGEAL REFLUX DISEASE
     Dosage: 40 MG
     Dates: start: 2000, end: 2011
  6. DEXILANT [Suspect]
     Active Substance: DEXLANSOPRAZOLE
     Indication: GASTROOESOPHAGEAL REFLUX DISEASE
     Dosage: 60 MG
     Dates: start: 201109, end: 2015
  7. PRILOSEC [Suspect]
     Active Substance: OMEPRAZOLE MAGNESIUM
     Indication: GASTROOESOPHAGEAL REFLUX DISEASE
     Dosage: 40 MG
     Dates: start: 2000, end: 2011
  8. LISINOPRIL. [Concomitant]
     Active Substance: LISINOPRIL
     Indication: HYPERTENSION
     Dosage: UNK
     Dates: start: 201508
  9. ONDANSETRON [Concomitant]
     Active Substance: ONDANSETRON
     Indication: NAUSEA
     Dosage: UNK
     Dates: start: 201508
  10. PREVACID [Suspect]
     Active Substance: LANSOPRAZOLE
     Indication: GASTROOESOPHAGEAL REFLUX DISEASE
     Dosage: 30 MG
     Dates: start: 2000, end: 2011
  11. FAMOTIDINE. [Concomitant]
     Active Substance: FAMOTIDINE
     Dosage: UNK
  12. DEXLANSOPRAZOLE [Suspect]
     Active Substance: DEXLANSOPRAZOLE
     Indication: GASTROOESOPHAGEAL REFLUX DISEASE
     Dosage: 60 MG
     Dates: start: 201105, end: 201106
  13. FUROSEMIDE. [Concomitant]
     Active Substance: FUROSEMIDE
     Indication: SWELLING
     Dosage: UNK
     Dates: start: 201302
  14. TUMS [Concomitant]
     Active Substance: CALCIUM CARBONATE
     Indication: ANTACID THERAPY
     Dosage: UNK, AS NEEDED

REACTIONS (6)
  - Acute kidney injury [Not Recovered/Not Resolved]
  - Renal failure [Unknown]
  - Death [Fatal]
  - Chronic kidney disease [Not Recovered/Not Resolved]
  - End stage renal disease [Unknown]
  - Rebound acid hypersecretion [Unknown]

NARRATIVE: CASE EVENT DATE: 2011
